FAERS Safety Report 9341659 (Version 2)
Quarter: 2013Q3

REPORT INFORMATION
  Report Type: Spontaneous
  Country: US (occurrence: US)
  Receive Date: 20130611
  Receipt Date: 20130705
  Transmission Date: 20140515
  Serious: No
  Sender: FDA-Public Use
  Company Number: US-PFIZER INC-2013174017

PATIENT
  Age: 68 Year
  Sex: Male

DRUGS (2)
  1. SUTENT [Suspect]
     Indication: RENAL CANCER
     Dosage: 50 MG, 1X/DAY (ONCE DAILY X 28 DAYS, OFF FOR 7 DAYS)
     Route: 048
     Dates: start: 20130314, end: 20130522
  2. SUTENT [Suspect]
     Dosage: 12.5 MG, CYCLIC (3 CAPS DAILY X 14 DAYS, OFF FOR 7 DAYS)
     Dates: start: 20130525

REACTIONS (4)
  - Fatigue [Unknown]
  - Palmar-plantar erythrodysaesthesia syndrome [Unknown]
  - Stomatitis [Unknown]
  - Ageusia [Unknown]
